FAERS Safety Report 21066394 (Version 1)
Quarter: 2022Q3

REPORT INFORMATION
  Report Type: Spontaneous
  Country: CN (occurrence: CN)
  Receive Date: 20220711
  Receipt Date: 20220711
  Transmission Date: 20221027
  Serious: Yes (Hospitalization)
  Sender: FDA-Public Use
  Company Number: CN-ELI_LILLY_AND_COMPANY-CN202207002155

PATIENT
  Age: 72 Year
  Sex: Male
  Weight: 69 kg

DRUGS (3)
  1. HUMALOG MIX75/25 [Suspect]
     Active Substance: INSULIN LISPRO
     Indication: Diabetes mellitus
     Dosage: 18 U, EACH MORNING
     Route: 058
     Dates: start: 2015
  2. HUMALOG MIX75/25 [Suspect]
     Active Substance: INSULIN LISPRO
     Dosage: 14 U, EACH EVENING
     Route: 058
     Dates: start: 2015
  3. LIRAGLUTIDE [Concomitant]
     Active Substance: LIRAGLUTIDE
     Indication: Product used for unknown indication

REACTIONS (5)
  - Blood glucose fluctuation [Unknown]
  - Diabetic complication [Unknown]
  - Visual impairment [Unknown]
  - Blood glucose increased [Unknown]
  - Product dose omission issue [Unknown]

NARRATIVE: CASE EVENT DATE: 20190101
